FAERS Safety Report 10166411 (Version 1)
Quarter: 2014Q2

REPORT INFORMATION
  Report Type: Spontaneous
  Country: US (occurrence: None)
  Receive Date: 20140509
  Receipt Date: 20140509
  Transmission Date: 20141212
  Serious: Yes (Death)
  Sender: FDA-Public Use
  Company Number: None

PATIENT
  Age: 79 Year
  Sex: Female

DRUGS (1)
  1. MIACALCIN [Suspect]
     Route: 045
     Dates: start: 2003, end: 2011

REACTIONS (3)
  - Malignant melanoma [None]
  - Bone cancer metastatic [None]
  - Hip fracture [None]
